FAERS Safety Report 23655191 (Version 1)
Quarter: 2024Q1

REPORT INFORMATION
  Report Type: Spontaneous
  Country: FR (occurrence: FR)
  Receive Date: 20240320
  Receipt Date: 20240320
  Transmission Date: 20240410
  Serious: Yes (Hospitalization)
  Sender: FDA-Public Use
  Company Number: None

PATIENT
  Age: 0 Day
  Sex: Male

DRUGS (1)
  1. PAROXETINE [Suspect]
     Active Substance: PAROXETINE
     Indication: Depression
     Dosage: 20MG , PAROXETINE (CHLORHYDRATE ANHYDRE DE)
     Route: 064
     Dates: start: 202209, end: 20231121

REACTIONS (1)
  - Newborn persistent pulmonary hypertension [Recovered/Resolved]

NARRATIVE: CASE EVENT DATE: 20231121
